FAERS Safety Report 20029192 (Version 1)
Quarter: 2021Q4

REPORT INFORMATION
  Report Type: Spontaneous
  Country: DE (occurrence: DE)
  Receive Date: 20211103
  Receipt Date: 20211103
  Transmission Date: 20220304
  Serious: Yes (Other)
  Sender: FDA-Public Use
  Company Number: DE-ARBOR PHARMACEUTICALS, LLC-DE-2021ARB001302

PATIENT

DRUGS (5)
  1. TRIPTODUR [Suspect]
     Active Substance: TRIPTORELIN
     Indication: Prostate cancer
     Dosage: DOSE AND STRENGTH: 11.25 MG (INJECTED INTO THE ABDOMEN) (11.25 MG,3 M)
     Route: 065
     Dates: start: 202008
  2. TRIPTODUR [Suspect]
     Active Substance: TRIPTORELIN
  3. TRIPTODUR [Suspect]
     Active Substance: TRIPTORELIN
  4. ZYTIGA [Concomitant]
     Active Substance: ABIRATERONE ACETATE
     Indication: Prostate cancer
     Dosage: UNK
  5. DICLOFENAC [Concomitant]
     Active Substance: DICLOFENAC
     Indication: Product used for unknown indication
     Dosage: UNK

REACTIONS (12)
  - Hip surgery [Unknown]
  - Muscle atrophy [Unknown]
  - Condition aggravated [Unknown]
  - Peripheral swelling [Unknown]
  - Gait disturbance [Unknown]
  - Chills [Unknown]
  - Piloerection [Unknown]
  - Arthralgia [Unknown]
  - Oedema peripheral [Unknown]
  - Asthenia [Unknown]
  - Mood swings [Unknown]
  - Product administered at inappropriate site [Unknown]

NARRATIVE: CASE EVENT DATE: 20200801
